FAERS Safety Report 9306922 (Version 2)
Quarter: 2013Q2

REPORT INFORMATION
  Report Type: Report from Study
  Country: AU (occurrence: AU)
  Receive Date: 20130523
  Receipt Date: 20130625
  Transmission Date: 20140414
  Serious: Yes (Hospitalization, Other)
  Sender: FDA-Public Use
  Company Number: PHHY2013AU051679

PATIENT
  Age: 32 Year
  Sex: Male

DRUGS (5)
  1. CLOZARIL [Suspect]
     Dosage: 400 MG
     Route: 048
     Dates: start: 20061026
  2. CEPHALEXIN [Concomitant]
     Dosage: 500 MG, BID
     Route: 048
  3. METRONIDAZOLE [Concomitant]
     Dosage: 400 MG, BID
     Route: 048
  4. PARACETAMOL [Concomitant]
     Dosage: 1 G, QID
     Route: 048
  5. OXYCODONE [Concomitant]
     Dosage: 10 MG, QID
     Route: 048

REACTIONS (1)
  - Subcutaneous abscess [Recovered/Resolved]
